FAERS Safety Report 4705652-4 (Version None)
Quarter: 2005Q2

REPORT INFORMATION
  Report Type: 
  Country: None (occurrence: None)
  Receive Date: 20050630
  Receipt Date: 20050621
  Transmission Date: 20051028
  Serious: Yes (Life-Threatening)
  Sender: FDA-Public Use
  Company Number: HQWYE628423JUN05

PATIENT

DRUGS (1)
  1. RAPAMUNE [Suspect]
     Indication: GRAFT VERSUS HOST DISEASE

REACTIONS (1)
  - RENAL FAILURE [None]
